FAERS Safety Report 12428138 (Version 1)
Quarter: 2016Q2

REPORT INFORMATION
  Report Type: Spontaneous
  Country: GR (occurrence: GR)
  Receive Date: 20160602
  Receipt Date: 20160602
  Transmission Date: 20160815
  Serious: Yes (Other)
  Sender: FDA-Public Use
  Company Number: PHHY2016GR075121

PATIENT
  Age: 38 Year
  Sex: Female

DRUGS (1)
  1. EXJADE [Suspect]
     Active Substance: DEFERASIROX
     Indication: PRODUCT USED FOR UNKNOWN INDICATION
     Dosage: EXJADE 500MG (4 TO 5 TIME DALILY)
     Route: 065
     Dates: start: 2011, end: 20160311

REACTIONS (2)
  - Urine calcium [Unknown]
  - Nephrolithiasis [Unknown]
